FAERS Safety Report 9119812 (Version 2)
Quarter: 2013Q2

REPORT INFORMATION
  Report Type: Report from Study
  Country: US (occurrence: US)
  Receive Date: 20130226
  Receipt Date: 20130627
  Transmission Date: 20140414
  Serious: Yes (Hospitalization)
  Sender: FDA-Public Use
  Company Number: US-ELI_LILLY_AND_COMPANY-US201204007831

PATIENT
  Sex: Female

DRUGS (16)
  1. TERIPARATIDE [Suspect]
     Indication: OSTEOPOROSIS
     Dosage: 20 UG, QD
     Dates: start: 201204
  2. TERIPARATIDE [Suspect]
     Dosage: 20 UG, QD
     Dates: start: 201204, end: 20120910
  3. TERIPARATIDE [Suspect]
     Dosage: 20 UG, QD
     Dates: start: 20130113
  4. TERIPARATIDE [Suspect]
     Dosage: 20 UG, QD
  5. DIFLUNISAL [Concomitant]
     Dosage: 500 UG, BID
  6. GABAPENTIN [Concomitant]
     Dosage: 600 MG, TID
  7. CLONAZEPAM [Concomitant]
     Dosage: 1 MG, EACH EVENING
  8. OMEPRAZOLE [Concomitant]
     Dosage: 20 MG, EACH EVENING
  9. DITROPAN XL [Concomitant]
     Dosage: 10 MG, EACH EVENING
  10. NASONEX [Concomitant]
     Dosage: 50 MG, OTHER
     Route: 045
  11. AMOXICILLIN AND CLAVULA. POTASSIUM /02043401/ [Concomitant]
     Dosage: UNK, BID
  12. VITAMIN C [Concomitant]
     Dosage: 1000 MG, QD
  13. MULTIVITAMIN [Concomitant]
  14. CITRACAL + D [Concomitant]
     Dosage: UNK, TID
  15. CRANBERRY [Concomitant]
     Dosage: 4200 MG, BID
  16. CYSTEX [Concomitant]
     Dosage: 1 DF, UNK

REACTIONS (7)
  - Back injury [Unknown]
  - Dehydration [Unknown]
  - Nausea [Not Recovered/Not Resolved]
  - Hypokinesia [Unknown]
  - Sinusitis [Unknown]
  - Injection site haemorrhage [Unknown]
  - Injection site bruising [Unknown]
